FAERS Safety Report 15106216 (Version 7)
Quarter: 2018Q4

REPORT INFORMATION
  Report Type: Spontaneous
  Country: JP (occurrence: JP)
  Receive Date: 20180704
  Receipt Date: 20181126
  Transmission Date: 20190204
  Serious: Yes (Death, Other)
  Sender: FDA-Public Use
  Company Number: JP-HORIZON-BUP-0051-2017

PATIENT
  Age: 53 Year
  Sex: Female

DRUGS (5)
  1. ARGI-U [Concomitant]
     Indication: ASPARTATE-GLUTAMATE-TRANSPORTER DEFICIENCY
     Dosage: 2 G TID TO 26-APR-2017, FROM 17-APR-2017 TO 10-MAY-2017 3 G TID, FROM 11-MAY-2017 6.67 G TID TO UNK
     Route: 048
     Dates: start: 20170413
  2. FUROSEMIDE. [Concomitant]
     Active Substance: FUROSEMIDE
     Indication: PROPHYLAXIS
     Dosage: 40 MG
     Route: 048
     Dates: start: 20170714
  3. PIARLE [Concomitant]
     Indication: ASPARTATE-GLUTAMATE-TRANSPORTER DEFICIENCY
     Dosage: 10 ML TID FROM 03-AUG-2017 TO 25-OCT-2017 AND 15 ML TID SINCE 26-OCT-2017
     Route: 048
     Dates: start: 20170803
  4. BUPHENYL [Suspect]
     Active Substance: SODIUM PHENYLBUTYRATE
     Indication: ASPARTATE-GLUTAMATE-TRANSPORTER DEFICIENCY
     Dosage: SEE NARRATIVE
     Route: 048
     Dates: start: 20170622
  5. ARGAMATE [Concomitant]
     Active Substance: CALCIUM POLYSTYRENE SULFONATE
     Indication: PROPHYLAXIS
     Dosage: 3 DF
     Route: 048
     Dates: start: 20171012

REACTIONS (6)
  - Oedema peripheral [Recovered/Resolved]
  - Hyperammonaemia [Fatal]
  - Hyperkalaemia [Recovered/Resolved]
  - Condition aggravated [Fatal]
  - Pulmonary congestion [Recovered/Resolved]
  - Off label use [Unknown]

NARRATIVE: CASE EVENT DATE: 20170714
